FAERS Safety Report 9825962 (Version 3)
Quarter: 2014Q2

REPORT INFORMATION
  Report Type: Spontaneous
  Country: DK (occurrence: DK)
  Receive Date: 20140117
  Receipt Date: 20140430
  Transmission Date: 20141212
  Serious: Yes (Hospitalization)
  Sender: FDA-Public Use
  Company Number: DK-NOVOPROD-391293

PATIENT
  Age: 59 Year
  Sex: Female
  Weight: 80 kg

DRUGS (2)
  1. NOVOMIX 30 FLEXPEN [Suspect]
     Indication: TYPE 1 DIABETES MELLITUS
     Dosage: 76 U, QD (22 U MORNING, 20 U MIDDAY AND 34 U IN THE EVENING)
     Route: 065
     Dates: start: 2004
  2. NOVOMIX 30 FLEXPEN [Suspect]
     Dosage: UNK
     Route: 065

REACTIONS (6)
  - Visual acuity reduced [Recovering/Resolving]
  - Eye pain [Recovering/Resolving]
  - Strabismus [Recovering/Resolving]
  - Eye swelling [Unknown]
  - Muscle spasms [Recovering/Resolving]
  - Blood glucose fluctuation [Recovering/Resolving]
